FAERS Safety Report 9068523 (Version 1)
Quarter: 2013Q1

REPORT INFORMATION
  Report Type: Spontaneous
  Country: US (occurrence: US)
  Receive Date: 20130206
  Receipt Date: 20130206
  Transmission Date: 20140127
  Serious: Yes (Other)
  Sender: FDA-Public Use
  Company Number: US-NICOBRDEVP-2013-01425

PATIENT
  Sex: Male

DRUGS (1)
  1. METFORMIN HYDROCHLORIDE (WATSON LABORATORIES) [Suspect]
     Indication: TYPE 2 DIABETES MELLITUS
     Dosage: 500MG, UNK
     Route: 048
     Dates: start: 2007

REACTIONS (8)
  - Lactic acidosis [Unknown]
  - Hepatic enzyme increased [Unknown]
  - Vision blurred [Unknown]
  - Oedema [Unknown]
  - Weight increased [Unknown]
  - Nausea [Unknown]
  - Vomiting [Unknown]
  - Dyspnoea [Unknown]
